FAERS Safety Report 26122559 (Version 1)
Quarter: 2025Q4

REPORT INFORMATION
  Report Type: Report from Study
  Country: CA (occurrence: CA)
  Receive Date: 20251204
  Receipt Date: 20251204
  Transmission Date: 20260118
  Serious: Yes (Death)
  Sender: CSL BEHRING
  Company Number: CA-BEH-2025227559

PATIENT
  Age: 48 Year
  Sex: Male
  Weight: 74.8 kg

DRUGS (1)
  1. HIZENTRA [Suspect]
     Active Substance: HUMAN IMMUNOGLOBULIN G
     Indication: Primary immunodeficiency syndrome
     Dosage: 10 G, QW
     Route: 058
     Dates: start: 20210105

REACTIONS (1)
  - Death [Fatal]
